FAERS Safety Report 9637374 (Version 2)
Quarter: 2013Q4

REPORT INFORMATION
  Report Type: Spontaneous
  Country: PL (occurrence: PL)
  Receive Date: 20131022
  Receipt Date: 20131101
  Transmission Date: 20140711
  Serious: Yes (Death)
  Sender: FDA-Public Use
  Company Number: PHHY2013PL117754

PATIENT
  Age: 21 Year
  Sex: Male

DRUGS (3)
  1. CARBAMAZEPINE [Suspect]
  2. DIAZEPAM [Suspect]
  3. MOCLOBEMIDE [Suspect]

REACTIONS (6)
  - Dependence [Fatal]
  - Serotonin syndrome [Fatal]
  - Multi-organ failure [Fatal]
  - Toxicity to various agents [Fatal]
  - Drug level increased [Fatal]
  - Feeling of relaxation [Unknown]
